FAERS Safety Report 7682518-1 (Version None)
Quarter: 2011Q3

REPORT INFORMATION
  Report Type: 
  Country: None (occurrence: None)
  Receive Date: 20110815
  Receipt Date: 20110808
  Transmission Date: 20111222
  Serious: Yes (Hospitalization)
  Sender: FDA-Public Use
  Company Number: US-AMGEN-USASP2011030729

PATIENT
  Sex: Female

DRUGS (6)
  1. ENBREL [Suspect]
     Indication: PSORIASIS
     Dosage: 50 MG, PRN
     Route: 058
     Dates: start: 20050205, end: 20080101
  2. ENBREL [Suspect]
     Dosage: 50 MG, QWK
     Route: 058
     Dates: start: 20070801, end: 20080701
  3. ENBREL [Suspect]
     Dosage: 50 MG, QWK
     Route: 058
     Dates: start: 20100601
  4. ENBREL [Suspect]
     Dosage: 50 MG, Q2WK
     Route: 058
     Dates: start: 20050209, end: 20050401
  5. ENBREL [Suspect]
     Dosage: 50 MG, Q2WK
     Route: 058
     Dates: start: 20051101, end: 20061001
  6. ENBREL [Suspect]

REACTIONS (2)
  - AMNIOTIC FLUID VOLUME DECREASED [None]
  - PSORIASIS [None]
